FAERS Safety Report 9614583 (Version 2)
Quarter: 2013Q4

REPORT INFORMATION
  Report Type: Spontaneous
  Country: None (occurrence: None)
  Receive Date: 20131008
  Receipt Date: 20131021
  Transmission Date: 20140711
  Serious: Yes (Hospitalization, Other)
  Sender: FDA-Public Use
  Company Number: CO-OR-JP-2013-109

PATIENT
  Age: 11 Year
  Sex: Female
  Weight: 31.6 kg

DRUGS (7)
  1. PREDNISOLONE [Suspect]
     Indication: IMMUNOSUPPRESSION
     Dosage: UNKNOWN
  2. PREDNISOLONE [Suspect]
     Indication: FOCAL SEGMENTAL GLOMERULOSCLEROSIS
     Dosage: UNKNOWN
  3. FLUDARABINE PHOSPHATE [Suspect]
     Indication: IMMUNOSUPPRESSION
  4. METHOTREXATE [Suspect]
     Indication: PROPHYLAXIS AGAINST GRAFT VERSUS HOST DISEASE
  5. GRANULOCYTE COLONY-STIMULATING FACTOR [Suspect]
     Indication: IMMUNOSUPPRESSION
  6. CYCLOPHOSPHAMIDE [Suspect]
     Indication: IMMUNOSUPPRESSION
  7. CYCLOSPORINE A (CYCLOSPORINE A) [Concomitant]

REACTIONS (4)
  - Focal segmental glomerulosclerosis [None]
  - Nephrotic syndrome [None]
  - Drug ineffective [None]
  - Bronchopulmonary aspergillosis [None]
